FAERS Safety Report 7183935-9 (Version None)
Quarter: 2010Q4

REPORT INFORMATION
  Report Type: 
  Country: None (occurrence: None)
  Receive Date: 20101222
  Receipt Date: 20101213
  Transmission Date: 20110411
  Serious: Yes (Other)
  Sender: FDA-Public Use
  Company Number: BR-BRISTOL-MYERS SQUIBB COMPANY-15445232

PATIENT
  Age: 74 Year
  Sex: Female

DRUGS (3)
  1. ONGLYZA [Suspect]
     Indication: TYPE 2 DIABETES MELLITUS
     Dosage: 1DF:1/2 TABLETS
     Route: 048
  2. GLIBENCLAMIDE [Concomitant]
  3. METFORMIN [Concomitant]

REACTIONS (3)
  - NAUSEA [None]
  - SWELLING FACE [None]
  - URTICARIA [None]
